FAERS Safety Report 7374951-2 (Version None)
Quarter: 2011Q1

REPORT INFORMATION
  Report Type: 
  Country: None (occurrence: None)
  Receive Date: 20110325
  Receipt Date: 20110311
  Transmission Date: 20110831
  Serious: Yes (Other)
  Sender: FDA-Public Use
  Company Number: PHHY2011SG20135

PATIENT

DRUGS (1)
  1. TASIGNA [Suspect]
     Indication: GASTROINTESTINAL STROMAL TUMOUR

REACTIONS (4)
  - FLUSHING [None]
  - DEPRESSION [None]
  - SUICIDAL IDEATION [None]
  - ERYTHEMA [None]
